FAERS Safety Report 14575849 (Version 1)
Quarter: 2018Q1

REPORT INFORMATION
  Report Type: Spontaneous
  Country: US (occurrence: US)
  Receive Date: 20180227
  Receipt Date: 20180227
  Transmission Date: 20180509
  Serious: No
  Sender: FDA-Public Use
  Company Number: US-B.I. PHARMACEUTICALS,INC./RIDGEFIELD-2018-BI-008987

PATIENT
  Age: 83 Year
  Sex: Female

DRUGS (8)
  1. GABAPENTIN. [Concomitant]
     Active Substance: GABAPENTIN
     Indication: NEURALGIA
     Dosage: TID;  FORM STRENGTH: 300 MG; FORMULATION: CAPSULE
     Route: 048
  2. GILOTRIF [Suspect]
     Active Substance: AFATINIB
     Indication: LUNG NEOPLASM MALIGNANT
     Dosage: STRENGTH:40MG; FORMULATION:TABLET ADMINISTRATION CORRECT?NRACTION(S) TAKEN : DRUG WITHDRAWN
     Route: 065
     Dates: start: 201712, end: 201712
  3. HYDOCODONE [Concomitant]
     Indication: SPINAL PAIN
  4. HYDOCODONE [Concomitant]
     Indication: OSTEOPOROSIS
  5. SOMA [Concomitant]
     Active Substance: CARISOPRODOL
     Indication: MYALGIA
     Dosage: PRN;  FORMULATION: TABLET;
     Route: 048
  6. TARCEVA [Concomitant]
     Active Substance: ERLOTINIB HYDROCHLORIDE
     Indication: LUNG NEOPLASM MALIGNANT
     Dosage: 1 TABLET 1 TIME DAILY;  FORM STRENGTH: 150 MG; FORMULATION: TABLET
     Route: 048
     Dates: start: 201801, end: 201801
  7. HYDOCODONE [Concomitant]
     Indication: ARTHRITIS
     Dosage: PRN;  FORM STRENGTH: 10 MG / 325MG; FORMULATION: TABLET
     Route: 048
     Dates: start: 2008
  8. LEVOTHYROXINE. [Concomitant]
     Active Substance: LEVOTHYROXINE
     Indication: HYPOTHYROIDISM
     Dosage: 1 TABLET 1 TIME DAILY;  FORM STRENGTH: 50 MCG; FORMULATION: TABLET
     Route: 048

REACTIONS (8)
  - Wound secretion [Recovered/Resolved]
  - Rash [Recovered/Resolved]
  - Erythema [Recovered/Resolved]
  - Insomnia [Recovered/Resolved]
  - Lip swelling [Recovered/Resolved]
  - Fatigue [Not Recovered/Not Resolved]
  - Pain of skin [Recovered/Resolved]
  - Pruritus [Recovered/Resolved]

NARRATIVE: CASE EVENT DATE: 201712
